FAERS Safety Report 5607444-0 (Version None)
Quarter: 2008Q1

REPORT INFORMATION
  Report Type: 
  Country: None (occurrence: None)
  Receive Date: 20080130
  Receipt Date: 20080121
  Transmission Date: 20080703
  Serious: Yes (Life-Threatening, Other)
  Sender: FDA-Public Use
  Company Number: AU-ALLERGAN-0800938US

PATIENT

DRUGS (1)
  1. BOTULINUM TOXIN TYPE A - GENERAL [Suspect]
     Indication: DROOLING
     Dosage: 4 IU/KG, SINGLE

REACTIONS (3)
  - CHOKING [None]
  - DYSPHAGIA [None]
  - SPEECH DISORDER [None]
